FAERS Safety Report 9928331 (Version 1)
Quarter: 2014Q1

REPORT INFORMATION
  Report Type: Report from Study
  Country: US (occurrence: US)
  Receive Date: 20140227
  Receipt Date: 20140227
  Transmission Date: 20141002
  Serious: Yes (Other)
  Sender: FDA-Public Use
  Company Number: US-ROCHE-1355973

PATIENT
  Sex: Female

DRUGS (2)
  1. LUCENTIS [Suspect]
     Indication: AGE-RELATED MACULAR DEGENERATION
     Dosage: EVERY TWO WEEKS
     Route: 050
  2. NITROGLYCERIN PATCH [Concomitant]
     Route: 065

REACTIONS (2)
  - Blindness [Unknown]
  - Cough [Not Recovered/Not Resolved]
